FAERS Safety Report 15153767 (Version 1)
Quarter: 2018Q3

REPORT INFORMATION
  Report Type: Spontaneous
  Country: GB (occurrence: GB)
  Receive Date: 20180717
  Receipt Date: 20180717
  Transmission Date: 20181010
  Serious: Yes (Congenital Anomaly, Other)
  Sender: FDA-Public Use
  Company Number: PHHY2018GB047010

PATIENT

DRUGS (9)
  1. VINCRISTINE [Suspect]
     Active Substance: VINCRISTINE
     Indication: FOETAL EXPOSURE DURING PREGNANCY
     Dosage: MATERNAL DOSE: 0.8 MG/M2
     Route: 065
  2. DACTINOMYCIN [Suspect]
     Active Substance: DACTINOMYCIN
     Indication: FOETAL EXPOSURE DURING PREGNANCY
     Dosage: MATERNAL DOSE: 0.5 MG
     Route: 064
  3. FOLINIC ACID [Concomitant]
     Active Substance: LEUCOVORIN
     Dosage: MATERNAL DOSE: 15 MG, Q6H
     Route: 064
  4. METHOTREXATE. [Suspect]
     Active Substance: METHOTREXATE
     Indication: FOETAL EXPOSURE DURING PREGNANCY
     Dosage: MATERNAL DOSE: 1000 MG/M2
     Route: 064
  5. METHOTREXATE. [Suspect]
     Active Substance: METHOTREXATE
     Dosage: MATERNAL DOSE: UNKNOWN, QW
     Route: 064
  6. METHOTREXATE. [Suspect]
     Active Substance: METHOTREXATE
     Dosage: MATERNAL DOSE: 300 MG/M2
     Route: 064
  7. FOLINIC ACID [Concomitant]
     Active Substance: LEUCOVORIN
     Indication: FOETAL EXPOSURE DURING PREGNANCY
     Dosage: MATERNAL DOSE: 15 MG, QD
     Route: 064
  8. CYCLOPHOSPHAMIDE. [Suspect]
     Active Substance: CYCLOPHOSPHAMIDE
     Indication: FOETAL EXPOSURE DURING PREGNANCY
     Dosage: 600 MG/M2, UNK
     Route: 065
  9. ETOPOSIDE. [Suspect]
     Active Substance: ETOPOSIDE
     Indication: FOETAL EXPOSURE DURING PREGNANCY
     Dosage: MATERNAL DOSE: 100 MG/M2
     Route: 064

REACTIONS (2)
  - Maternal exposure before pregnancy [Unknown]
  - Umbilical hernia [Unknown]
